FAERS Safety Report 21059287 (Version 1)
Quarter: 2022Q3

REPORT INFORMATION
  Report Type: Spontaneous
  Country: CN (occurrence: CN)
  Receive Date: 20220708
  Receipt Date: 20220708
  Transmission Date: 20221027
  Serious: Yes (Other)
  Sender: FDA-Public Use
  Company Number: CN-SA-SAC20220704002092

PATIENT
  Age: 1 Year
  Sex: Female
  Weight: 7.4 kg

DRUGS (1)
  1. THYMOGLOBULIN [Suspect]
     Active Substance: LAPINE T-LYMPHOCYTE IMMUNE GLOBULIN
     Indication: Chemotherapy
     Dosage: 25 MG, QD
     Route: 041
     Dates: start: 20220408, end: 20220408

REACTIONS (2)
  - Heart rate abnormal [Recovering/Resolving]
  - Pyrexia [Recovering/Resolving]

NARRATIVE: CASE EVENT DATE: 20220408
